FAERS Safety Report 7249472-8 (Version None)
Quarter: 2011Q1

REPORT INFORMATION
  Report Type: 
  Country: None (occurrence: None)
  Receive Date: 20110128
  Receipt Date: 20101216
  Transmission Date: 20110831
  Serious: Yes (Hospitalization, Other)
  Sender: FDA-Public Use
  Company Number: US-BAYER-200935663NA

PATIENT
  Sex: Female

DRUGS (4)
  1. YASMIN [Suspect]
     Indication: DYSMENORRHOEA
     Dosage: UNK MG, UNK
     Route: 048
     Dates: start: 20050101
  2. YAZ [Suspect]
     Indication: PRODUCT USED FOR UNKNOWN INDICATION
     Route: 048
  3. K-DUR [Concomitant]
     Dosage: 20 MEQ, UNK
  4. LEXAPRO [Concomitant]
     Indication: DEPRESSION
     Dosage: 10 MG, UNK

REACTIONS (10)
  - VOMITING [None]
  - BALANCE DISORDER [None]
  - HYPOAESTHESIA FACIAL [None]
  - THROMBOSIS [None]
  - GAIT DISTURBANCE [None]
  - PULMONARY EMBOLISM [None]
  - VISION BLURRED [None]
  - SENSATION OF HEAVINESS [None]
  - CEREBROVASCULAR ACCIDENT [None]
  - NAUSEA [None]
